FAERS Safety Report 8124782-0 (Version None)
Quarter: 2012Q1

REPORT INFORMATION
  Report Type: 
  Country: None (occurrence: None)
  Receive Date: 20120209
  Receipt Date: 20120131
  Transmission Date: 20120608
  Serious: Yes (Hospitalization)
  Sender: FDA-Public Use
  Company Number: US-BAXTER-2012BH001413

PATIENT
  Sex: Female

DRUGS (1)
  1. DIANEAL [Suspect]
     Indication: PERITONEAL DIALYSIS
     Route: 033
     Dates: start: 20100126

REACTIONS (5)
  - FAILURE TO THRIVE [None]
  - HYPOPHAGIA [None]
  - DYSGEUSIA [None]
  - VOMITING [None]
  - DIARRHOEA [None]
